FAERS Safety Report 13103837 (Version 4)
Quarter: 2023Q2

REPORT INFORMATION
  Report Type: Other
  Country: US (occurrence: None)
  Receive Date: 20170111
  Receipt Date: 20230605
  Transmission Date: 20230722
  Serious: Yes (Other)
  Sender: FDA-Public Use
  Company Number: US-ROCHE-1875560

PATIENT
  Age: 50 Year
  Sex: Female
  Weight: 65.376 kg

DRUGS (14)
  1. XOLAIR [Suspect]
     Active Substance: OMALIZUMAB
     Indication: Asthma
     Dosage: 3 SHOTS INTO ARMS EVERY TWO WEEKS ;ONGOING: NO
     Route: 058
     Dates: start: 20110713, end: 201604
  2. XOLAIR [Suspect]
     Active Substance: OMALIZUMAB
     Indication: Rhinitis allergic
     Dosage: YES
     Route: 058
     Dates: start: 201610
  3. XOLAIR [Suspect]
     Active Substance: OMALIZUMAB
     Indication: Asthma
     Route: 058
     Dates: start: 2021
  4. XOLAIR [Suspect]
     Active Substance: OMALIZUMAB
     Route: 058
     Dates: start: 2010, end: 2015
  5. VALIUM [Suspect]
     Active Substance: DIAZEPAM
     Indication: Product used for unknown indication
     Route: 065
  6. CELEBREX [Concomitant]
     Active Substance: CELECOXIB
     Dosage: YES
     Route: 048
  7. TORADOL [Concomitant]
     Active Substance: KETOROLAC TROMETHAMINE
     Dosage: YES
     Route: 048
  8. TORADOL [Concomitant]
     Active Substance: KETOROLAC TROMETHAMINE
     Dosage: GIVEN AT DOCTOR^S OFFICE FOR SEVERE PAIN ;ONGOING: YES
  9. XYZAL [Concomitant]
     Active Substance: LEVOCETIRIZINE DIHYDROCHLORIDE
     Indication: Hypersensitivity
     Dosage: ONGOING:YES
     Route: 048
  10. PROVENTIL [Concomitant]
     Active Substance: ALBUTEROL
     Dosage: AS NEEDED ;ONGOING: YES
     Route: 055
  11. PREDNISONE [Concomitant]
     Active Substance: PREDNISONE
     Dosage: NO
     Route: 048
     Dates: start: 201607, end: 201610
  12. PREDNISONE [Concomitant]
     Active Substance: PREDNISONE
     Dosage: 6 DAYS A WEEK ;ONGOING: NO
  13. SPIRIVA RESPIMAT [Concomitant]
     Active Substance: TIOTROPIUM BROMIDE
  14. ASTELIN [Concomitant]
     Active Substance: AZELASTINE HYDROCHLORIDE

REACTIONS (36)
  - Fall [Unknown]
  - Rib fracture [Unknown]
  - Cartilage injury [Not Recovered/Not Resolved]
  - Concussion [Unknown]
  - Facial bones fracture [Unknown]
  - Skin laceration [Unknown]
  - Dyspnoea [Not Recovered/Not Resolved]
  - Hypoxia [Unknown]
  - Chest pain [Not Recovered/Not Resolved]
  - Loss of consciousness [Recovered/Resolved]
  - Lung disorder [Unknown]
  - Drug ineffective [Unknown]
  - Inflammation [Unknown]
  - Pulmonary mass [Not Recovered/Not Resolved]
  - Oxygen saturation decreased [Not Recovered/Not Resolved]
  - Muscle spasms [Not Recovered/Not Resolved]
  - Urticaria [Not Recovered/Not Resolved]
  - Flatulence [Not Recovered/Not Resolved]
  - Ulcer [Recovered/Resolved]
  - Burning sensation [Unknown]
  - Eosinophilic oesophagitis [Not Recovered/Not Resolved]
  - Asthma [Not Recovered/Not Resolved]
  - Gait disturbance [Recovered/Resolved]
  - Swelling [Not Recovered/Not Resolved]
  - Pain [Not Recovered/Not Resolved]
  - Blood cholesterol increased [Recovering/Resolving]
  - Rash [Not Recovered/Not Resolved]
  - Pruritus [Not Recovered/Not Resolved]
  - Bedridden [Recovered/Resolved]
  - Oesophageal disorder [Not Recovered/Not Resolved]
  - Crepitations [Unknown]
  - Bone contusion [Not Recovered/Not Resolved]
  - Bruxism [Not Recovered/Not Resolved]
  - Hypersensitivity [Unknown]
  - Blood pressure fluctuation [Unknown]
  - Arrhythmia [Unknown]

NARRATIVE: CASE EVENT DATE: 20110101
